FAERS Safety Report 24777539 (Version 3)
Quarter: 2025Q1

REPORT INFORMATION
  Report Type: Spontaneous
  Country: US (occurrence: US)
  Receive Date: 20241226
  Receipt Date: 20250123
  Transmission Date: 20250408
  Serious: Yes (Hospitalization, Other)
  Sender: SANOFI AVENTIS
  Company Number: US-SA-2024SA380383

PATIENT
  Age: 76 Year
  Sex: Female

DRUGS (2)
  1. DUPIXENT [Suspect]
     Active Substance: DUPILUMAB
     Indication: Impetigo
     Dosage: 300 MG, QOW
     Route: 058
     Dates: start: 201808, end: 2024
  2. DUPIXENT [Suspect]
     Active Substance: DUPILUMAB
     Indication: Dermatitis atopic
     Dosage: 300 MG, QOW
     Route: 058
     Dates: start: 20241203

REACTIONS (10)
  - Cerebrovascular accident [Unknown]
  - Fall [Unknown]
  - Impetigo [Unknown]
  - Condition aggravated [Unknown]
  - Pain [Unknown]
  - Skin burning sensation [Unknown]
  - Pruritus [Unknown]
  - Dermatitis atopic [Unknown]
  - Product use in unapproved indication [Unknown]
  - Inappropriate schedule of product administration [Unknown]

NARRATIVE: CASE EVENT DATE: 20180801
